FAERS Safety Report 24928140 (Version 1)
Quarter: 2025Q1

REPORT INFORMATION
  Report Type: Spontaneous
  Country: US (occurrence: US)
  Receive Date: 20250205
  Receipt Date: 20250205
  Transmission Date: 20250408
  Serious: Yes (Other)
  Sender: GLAND PHARMA LTD
  Company Number: US-GLANDPHARMA-US-2025GLNLIT00158

PATIENT
  Age: 46 Year
  Sex: Male

DRUGS (4)
  1. MOXIFLOXACIN [Suspect]
     Active Substance: MOXIFLOXACIN
     Indication: Product used for unknown indication
  2. DOXYCYCLINE [Suspect]
     Active Substance: DOXYCYCLINE
     Indication: Product used for unknown indication
     Route: 048
  3. PREDNISOLONE ACETATE [Suspect]
     Active Substance: PREDNISOLONE ACETATE
     Indication: Product used for unknown indication
     Route: 065
  4. KETOROLAC [Suspect]
     Active Substance: KETOROLAC TROMETHAMINE
     Indication: Product used for unknown indication

REACTIONS (1)
  - Keratitis fungal [Recovering/Resolving]
